FAERS Safety Report 5008923-X (Version None)
Quarter: 2006Q2

REPORT INFORMATION
  Report Type: 
  Country: None (occurrence: None)
  Receive Date: 20060518
  Receipt Date: 20060509
  Transmission Date: 20061013
  Serious: Yes (Disabling, Other)
  Sender: FDA-Public Use
  Company Number: 2006-01-0757

PATIENT
  Age: 48 Year
  Sex: Female
  Weight: 60.782 kg

DRUGS (6)
  1. PEG-INTRON [Suspect]
     Indication: HEPATITIS C
     Dosage: 80 MCG QWK SUBCUTANEOUS
     Route: 058
     Dates: start: 20050104, end: 20051024
  2. RIBAVIRIN [Suspect]
     Indication: HEPATITIS C
     Dosage: 800 MG QD ORAL
     Route: 048
     Dates: start: 20050104, end: 20051024
  3. HYDROCODONE [Concomitant]
  4. ALPRAZOLAM [Concomitant]
  5. OXAZEPAM [Concomitant]
  6. HYDROXYZINE [Concomitant]

REACTIONS (12)
  - ANAEMIA [None]
  - ARTHRALGIA [None]
  - DEPRESSION [None]
  - FIBROMYALGIA [None]
  - HYPERAESTHESIA [None]
  - IMPAIRED WORK ABILITY [None]
  - INSOMNIA [None]
  - NEUROPATHY [None]
  - OEDEMA PERIPHERAL [None]
  - PLANTAR FASCIITIS [None]
  - SKIN BURNING SENSATION [None]
  - WEIGHT INCREASED [None]
